FAERS Safety Report 13741399 (Version 1)
Quarter: 2017Q3

REPORT INFORMATION
  Report Type: Report from Study
  Country: None (occurrence: NL)
  Receive Date: 20170711
  Receipt Date: 20170711
  Transmission Date: 20171127
  Serious: Yes (Life-Threatening, Other)
  Sender: FDA-Public Use
  Company Number: NL-ABBVIE-17P-114-2032904-00

PATIENT
  Age: 80 Year
  Sex: Male

DRUGS (1)
  1. DUODOPA [Suspect]
     Active Substance: CARBIDOPA\LEVODOPA
     Indication: PARKINSON^S DISEASE
     Dosage: MD: 10.0, CD: 4.6, ED: 2.5
     Route: 050
     Dates: start: 20131218

REACTIONS (5)
  - Epilepsy [Recovered/Resolved]
  - Dyspnoea [Recovered/Resolved]
  - Orthostatic hypotension [Unknown]
  - Coma [Recovered/Resolved]
  - Unresponsive to stimuli [Recovered/Resolved]

NARRATIVE: CASE EVENT DATE: 20170706
